FAERS Safety Report 7998440-7 (Version None)
Quarter: 2011Q4

REPORT INFORMATION
  Report Type: 
  Country: None (occurrence: None)
  Receive Date: 20111221
  Receipt Date: 20111025
  Transmission Date: 20120403
  Serious: No
  Sender: FDA-Public Use
  Company Number: US-GLAXOSMITHKLINE-A0950457A

PATIENT
  Age: 46 Year
  Sex: Female

DRUGS (3)
  1. METFORMIN HCL [Concomitant]
  2. LOVAZA [Suspect]
     Indication: MACULAR DEGENERATION
     Dosage: 2CAP TWICE PER DAY
     Route: 048
  3. LISINOPRIL [Concomitant]

REACTIONS (2)
  - THERAPEUTIC RESPONSE UNEXPECTED [None]
  - OFF LABEL USE [None]
